FAERS Safety Report 23232772 (Version 1)
Quarter: 2023Q4

REPORT INFORMATION
  Report Type: Spontaneous
  Country: US (occurrence: US)
  Receive Date: 20231128
  Receipt Date: 20231128
  Transmission Date: 20240110
  Serious: Yes (Other)
  Sender: FDA-Public Use
  Company Number: US-AMGEN-USASP2023209306

PATIENT
  Age: 78 Year
  Sex: Female

DRUGS (4)
  1. PROLIA [Suspect]
     Active Substance: DENOSUMAB
     Indication: Osteoporosis
     Dosage: UNK
     Route: 065
     Dates: start: 2013
  2. PROLIA [Suspect]
     Active Substance: DENOSUMAB
     Dosage: UNK, Q6MO
     Route: 065
     Dates: start: 202012
  3. ALENDRONIC ACID [Concomitant]
     Active Substance: ALENDRONIC ACID
     Dosage: 70 MILLIGRAM, QWK
     Route: 065
  4. ZOLEDRONIC ACID [Concomitant]
     Active Substance: ZOLEDRONIC ACID
     Dosage: UNK
     Route: 065

REACTIONS (10)
  - Myelodysplastic syndrome [Unknown]
  - Cardiac failure congestive [Unknown]
  - Periprosthetic fracture [Unknown]
  - Pelvic fracture [Unknown]
  - Shock haemorrhagic [Unknown]
  - Fall [Unknown]
  - Splenomegaly [Unknown]
  - Liver function test increased [Unknown]
  - General physical health deterioration [Unknown]
  - Bone density decreased [Unknown]

NARRATIVE: CASE EVENT DATE: 20230101
